FAERS Safety Report 4737166-X (Version None)
Quarter: 2005Q3

REPORT INFORMATION
  Report Type: 
  Country: None (occurrence: None)
  Receive Date: 20050728
  Receipt Date: 20050517
  Transmission Date: 20060218
  Serious: No
  Sender: FDA-Public Use
  Company Number: 200513874US

PATIENT
  Age: 62 Year
  Sex: Female

DRUGS (2)
  1. KETEK [Suspect]
     Indication: COUGH
     Dates: start: 20050301, end: 20050301
  2. KETEK [Suspect]
     Indication: PHARYNGOLARYNGEAL PAIN
     Dates: start: 20050301, end: 20050301

REACTIONS (2)
  - GLOSSODYNIA [None]
  - ORAL DISCOMFORT [None]
